FAERS Safety Report 9462364 (Version 2)
Quarter: 2013Q3

REPORT INFORMATION
  Report Type: Report from Study
  Country: US (occurrence: US)
  Receive Date: 20130816
  Receipt Date: 20130823
  Transmission Date: 20140515
  Serious: Yes (Hospitalization)
  Sender: FDA-Public Use
  Company Number: US-ROCHE-1262413

PATIENT
  Age: 56 Year
  Sex: Male
  Weight: 72.64 kg

DRUGS (1)
  1. XELODA [Suspect]
     Indication: COLON CANCER
     Dosage: EVERY MORNING AND NIGHT
     Route: 048
     Dates: start: 20130520, end: 20130621

REACTIONS (2)
  - Colon operation [Recovering/Resolving]
  - Orchitis [Recovered/Resolved]
